FAERS Safety Report 11857386 (Version 1)
Quarter: 2015Q4

REPORT INFORMATION
  Report Type: Spontaneous
  Country: PL (occurrence: PL)
  Receive Date: 20151221
  Receipt Date: 20151221
  Transmission Date: 20160305
  Serious: Yes (Other)
  Sender: FDA-Public Use
  Company Number: PL-ACTAVIS-2015-27974

PATIENT
  Age: 39 Year
  Sex: Female

DRUGS (1)
  1. LEVOSERT [Suspect]
     Active Substance: LEVONORGESTREL
     Indication: CONTRACEPTION
     Dosage: 20 MCG, DAILY
     Route: 015
     Dates: start: 20150930, end: 20151112

REACTIONS (3)
  - Pain [Unknown]
  - Device dislocation [Unknown]
  - Device expulsion [Unknown]

NARRATIVE: CASE EVENT DATE: 20151112
